FAERS Safety Report 21451070 (Version 2)
Quarter: 2023Q1

REPORT INFORMATION
  Report Type: Report from Study
  Country: US (occurrence: US)
  Receive Date: 20221013
  Receipt Date: 20230101
  Transmission Date: 20230418
  Serious: Yes (Hospitalization, Other)
  Sender: FDA-Public Use
  Company Number: US-ABBVIE-22K-163-4358781-00

PATIENT
  Sex: Female

DRUGS (7)
  1. HUMIRA [Suspect]
     Active Substance: ADALIMUMAB
     Indication: Psoriatic arthropathy
     Route: 058
     Dates: start: 2022, end: 202211
  2. HUMIRA [Suspect]
     Active Substance: ADALIMUMAB
     Dosage: END DATE 2021
     Route: 058
     Dates: start: 20211201
  3. HUMIRA [Suspect]
     Active Substance: ADALIMUMAB
     Route: 058
     Dates: start: 202112, end: 20220317
  4. HUMIRA [Suspect]
     Active Substance: ADALIMUMAB
     Route: 058
     Dates: start: 202112, end: 2022
  5. HUMIRA [Suspect]
     Active Substance: ADALIMUMAB
     Dosage: FIRST ADMIN DATE 2022
     Route: 058
  6. TRAMADOL [Concomitant]
     Active Substance: TRAMADOL
     Indication: Pain
     Route: 065
  7. LYRICA [Concomitant]
     Active Substance: PREGABALIN
     Indication: Product used for unknown indication

REACTIONS (23)
  - Knee operation [Recovering/Resolving]
  - Arthralgia [Unknown]
  - Pain [Unknown]
  - Arthralgia [Recovering/Resolving]
  - Psoriasis [Unknown]
  - Pulmonary thrombosis [Unknown]
  - Unevaluable event [Unknown]
  - Flatulence [Unknown]
  - Grip strength decreased [Not Recovered/Not Resolved]
  - Diverticulitis [Unknown]
  - Gait disturbance [Unknown]
  - Diarrhoea [Recovered/Resolved]
  - Loss of personal independence in daily activities [Unknown]
  - Pulmonary embolism [Recovered/Resolved]
  - Urinary tract infection [Unknown]
  - Neuralgia [Not Recovered/Not Resolved]
  - Peripheral swelling [Unknown]
  - Joint swelling [Unknown]
  - Thrombosis [Not Recovered/Not Resolved]
  - Clostridium difficile infection [Not Recovered/Not Resolved]
  - Feeling abnormal [Unknown]
  - Postoperative thrombosis [Recovered/Resolved]
  - Mobility decreased [Not Recovered/Not Resolved]

NARRATIVE: CASE EVENT DATE: 20220101
